FAERS Safety Report 17130576 (Version 2)
Quarter: 2020Q2

REPORT INFORMATION
  Report Type: Spontaneous
  Country: PT (occurrence: PT)
  Receive Date: 20191209
  Receipt Date: 20200428
  Transmission Date: 20200713
  Serious: Yes (Other)
  Sender: FDA-Public Use
  Company Number: PT-MYLANLABS-2019M1119932

PATIENT
  Age: 51 Year
  Sex: Male

DRUGS (5)
  1. INFLIXIMAB [Suspect]
     Active Substance: INFLIXIMAB
     Indication: CROHN^S DISEASE
     Dosage: UNK
     Dates: start: 201604
  2. PREGABALIN. [Suspect]
     Active Substance: PREGABALIN
     Dosage: 1 G, DAILY
     Dates: start: 2014
  3. SULFASALAZINE. [Suspect]
     Active Substance: SULFASALAZINE
     Indication: CROHN^S DISEASE
     Dosage: UNK
  4. PREGABALIN. [Suspect]
     Active Substance: PREGABALIN
     Indication: SPONDYLITIS
     Dosage: 150 MILLIGRAM, QD
  5. INFLIXIMAB [Suspect]
     Active Substance: INFLIXIMAB
     Indication: SPONDYLITIS
     Dosage: 5 MG/KG, 8/8 WEEKS

REACTIONS (9)
  - Demyelination [Unknown]
  - Hypoaesthesia eye [Unknown]
  - Optic atrophy [Unknown]
  - Cellulitis orbital [Unknown]
  - Arthralgia [Recovering/Resolving]
  - Sinusitis [Unknown]
  - Optic neuritis [Recovering/Resolving]
  - Ophthalmoplegia [Unknown]
  - Paraesthesia [Unknown]

NARRATIVE: CASE EVENT DATE: 201508
